FAERS Safety Report 20468453 (Version 1)
Quarter: 2022Q1

REPORT INFORMATION
  Report Type: Report from Study
  Country: IE (occurrence: IE)
  Receive Date: 20220214
  Receipt Date: 20220214
  Transmission Date: 20220423
  Serious: Yes (Hospitalization)
  Sender: FDA-Public Use
  Company Number: IE-AstraZeneca-2022A001365

PATIENT
  Age: 0 Year
  Sex: Female

DRUGS (7)
  1. SYNAGIS [Suspect]
     Active Substance: PALIVIZUMAB
     Indication: Heart disease congenital
     Route: 030
     Dates: start: 20211015
  2. SYNAGIS [Suspect]
     Active Substance: PALIVIZUMAB
     Route: 030
     Dates: start: 20211112
  3. SYNAGIS [Suspect]
     Active Substance: PALIVIZUMAB
     Route: 030
     Dates: start: 20211210
  4. SYNAGIS [Suspect]
     Active Substance: PALIVIZUMAB
     Route: 030
     Dates: start: 20220105
  5. SYNAGIS [Suspect]
     Active Substance: PALIVIZUMAB
     Route: 030
     Dates: start: 20220205
  6. FUROSEMIDE [Concomitant]
     Active Substance: FUROSEMIDE
     Indication: Product used for unknown indication
     Route: 050
  7. SPIRONOLACTONE [Concomitant]
     Active Substance: SPIRONOLACTONE
     Indication: Product used for unknown indication
     Route: 050

REACTIONS (6)
  - Feeding disorder [Recovered/Resolved]
  - Oxygen saturation decreased [Recovered/Resolved]
  - Nasopharyngitis [Recovered/Resolved]
  - Parainfluenzae virus infection [Recovered/Resolved]
  - Malaise [Recovered/Resolved]
  - Inappropriate schedule of product administration [Recovered/Resolved]

NARRATIVE: CASE EVENT DATE: 20211220
